FAERS Safety Report 23819014 (Version 1)
Quarter: 2024Q2

REPORT INFORMATION
  Report Type: Spontaneous
  Country: US (occurrence: None)
  Receive Date: 20240506
  Receipt Date: 20240506
  Transmission Date: 20240716
  Serious: No
  Sender: FDA-Public Use
  Company Number: 2024A101095

PATIENT
  Sex: Female

DRUGS (1)
  1. BREZTRI [Suspect]
     Active Substance: BUDESONIDE\FORMOTEROL\GLYCOPYRROLATE
     Dosage: TWO PUFFS TWICE DAILY
     Route: 055

REACTIONS (3)
  - Heart rate increased [Unknown]
  - Oxygen saturation decreased [Unknown]
  - Feeling jittery [Unknown]
